FAERS Safety Report 7833296-4 (Version None)
Quarter: 2011Q4

REPORT INFORMATION
  Report Type: 
  Country: None (occurrence: None)
  Receive Date: 20111024
  Receipt Date: 20111013
  Transmission Date: 20120403
  Serious: Yes (Hospitalization, Other)
  Sender: FDA-Public Use
  Company Number: US-ELI_LILLY_AND_COMPANY-US200908006579

PATIENT
  Sex: Female
  Weight: 55.34 kg

DRUGS (9)
  1. CORTAB [Concomitant]
  2. FORTEO [Suspect]
     Indication: OSTEOPOROSIS
     Dosage: 20 UG, QD
     Route: 058
     Dates: start: 20090801
  3. FORTEO [Suspect]
     Dosage: 20 UG, QD
     Route: 058
  4. ZOCOR [Concomitant]
  5. FORTEO [Suspect]
     Dosage: 20 UG, QD
     Route: 058
  6. NEXIUM [Concomitant]
     Dosage: 40 UNK, UNK
  7. FORTEO [Suspect]
     Dosage: 20 UG, QD
     Route: 058
  8. VIT D [Concomitant]
     Dosage: 50000 IU, 3/W
  9. PLAVIX [Concomitant]
     Dosage: 75 UNK, UNK

REACTIONS (7)
  - INJECTION SITE REACTION [None]
  - INJECTION SITE HAEMORRHAGE [None]
  - ASTHENIA [None]
  - INJECTION SITE HAEMATOMA [None]
  - DIZZINESS [None]
  - TRANSIENT ISCHAEMIC ATTACK [None]
  - BONE DISORDER [None]
